FAERS Safety Report 25376840 (Version 1)
Quarter: 2025Q2

REPORT INFORMATION
  Report Type: Spontaneous
  Country: AU (occurrence: AU)
  Receive Date: 20250530
  Receipt Date: 20250530
  Transmission Date: 20250716
  Serious: Yes (Other)
  Sender: NOVO NORDISK
  Company Number: AU-NOVOPROD-1404644

PATIENT
  Age: 69 Year
  Sex: Female
  Weight: 74 kg

DRUGS (8)
  1. WEGOVY [Suspect]
     Active Substance: SEMAGLUTIDE
     Indication: Weight control
     Dates: start: 202501
  2. WEGOVY [Suspect]
     Active Substance: SEMAGLUTIDE
     Indication: Smoking cessation therapy
  3. WEGOVY [Suspect]
     Active Substance: SEMAGLUTIDE
     Dates: start: 2025
  4. WEGOVY [Suspect]
     Active Substance: SEMAGLUTIDE
     Indication: Weight control
     Dates: start: 202502, end: 20250418
  5. ASPIRIN [Concomitant]
     Active Substance: ASPIRIN
  6. CRESTOR [Concomitant]
     Active Substance: ROSUVASTATIN CALCIUM
     Indication: Blood cholesterol increased
  7. PROLIA [Concomitant]
     Active Substance: DENOSUMAB
     Indication: Osteoporosis
  8. LEVOTHYROXINE [Concomitant]
     Active Substance: LEVOTHYROXINE
     Indication: Hypothyroidism

REACTIONS (6)
  - Renal impairment [Recovered/Resolved]
  - Urine odour abnormal [Recovered/Resolved]
  - Urinary tract infection [Recovered/Resolved]
  - Gout [Recovered/Resolved]
  - Peripheral swelling [Unknown]
  - Gastrooesophageal reflux disease [Not Recovered/Not Resolved]

NARRATIVE: CASE EVENT DATE: 20250101
